FAERS Safety Report 5088062-2 (Version None)
Quarter: 2006Q3

REPORT INFORMATION
  Report Type: 
  Country: None (occurrence: None)
  Receive Date: 20060727
  Receipt Date: 20060429
  Transmission Date: 20061208
  Serious: Yes (Other)
  Sender: FDA-Public Use
  Company Number: 2006037409

PATIENT
  Sex: Female

DRUGS (4)
  1. LYRICA [Suspect]
     Indication: NEURALGIA
     Dosage: 150 MG (75 MG, 2 IN 1 D), ORAL
     Route: 048
     Dates: start: 20060306
  2. SYNTHROID [Concomitant]
  3. VASOTEC [Concomitant]
  4. NASONEX [Concomitant]

REACTIONS (1)
  - PAIN IN EXTREMITY [None]
